FAERS Safety Report 7764643-X (Version None)
Quarter: 2011Q3

REPORT INFORMATION
  Report Type: 
  Country: None (occurrence: None)
  Receive Date: 20110919
  Receipt Date: 20110909
  Transmission Date: 20111222
  Serious: Yes (Other)
  Sender: FDA-Public Use
  Company Number: 2011MA013408

PATIENT
  Age: 84 Year

DRUGS (18)
  1. CODEINE SULFATE [Concomitant]
  2. GLICLAZIDE [Concomitant]
  3. BISOPROLOL [Concomitant]
  4. ENALAPRIL MALEATE [Concomitant]
  5. AMITRIPTYLINE HCL [Concomitant]
  6. FLOXACILLIN SODIUM [Concomitant]
  7. METFORMIN HCL [Concomitant]
  8. BETAHISTINE [Concomitant]
  9. CODEINE SULFATE [Concomitant]
  10. ISOSORBIDE MONONITRATE [Concomitant]
  11. NITROGLYCERIN [Concomitant]
  12. LORATADINE [Concomitant]
  13. ACETAMINOPHEN [Concomitant]
  14. TAMSULOSIN HCL [Concomitant]
  15. FINASTERIDE [Suspect]
     Dates: start: 20110801
  16. OMEPRAZOLE [Concomitant]
  17. DOXAZOSIN MESYLATE [Concomitant]
  18. SIMVASTATIN [Concomitant]

REACTIONS (1)
  - DIARRHOEA [None]
